FAERS Safety Report 6066605-X (Version None)
Quarter: 2009Q1

REPORT INFORMATION
  Report Type: 
  Country: None (occurrence: None)
  Receive Date: 20090205
  Receipt Date: 20090128
  Transmission Date: 20090719
  Serious: Yes (Life-Threatening, Hospitalization)
  Sender: FDA-Public Use
  Company Number: B0556396A

PATIENT
  Age: 41 Year
  Sex: Male

DRUGS (1)
  1. ZOVIRAX [Suspect]
     Dosage: 600MG THREE TIMES PER DAY
     Route: 042
     Dates: start: 20081217, end: 20081222

REACTIONS (6)
  - ANURIA [None]
  - COMA [None]
  - EXTENSOR PLANTAR RESPONSE [None]
  - HYPERREFLEXIA [None]
  - PROTEINURIA [None]
  - RENAL FAILURE ACUTE [None]
